FAERS Safety Report 14679079 (Version 4)
Quarter: 2018Q2

REPORT INFORMATION
  Report Type: Report from Study
  Country: US (occurrence: US)
  Receive Date: 20180326
  Receipt Date: 20180618
  Transmission Date: 20180711
  Serious: Yes (Life-Threatening, Hospitalization, Other)
  Sender: FDA-Public Use
  Company Number: PHEH2018US010695

PATIENT
  Sex: Female

DRUGS (1)
  1. PROMACTA [Suspect]
     Active Substance: ELTROMBOPAG OLAMINE
     Indication: PRODUCT USED FOR UNKNOWN INDICATION
     Dosage: UNK
     Route: 065

REACTIONS (8)
  - Confusional state [Unknown]
  - Wrist fracture [Unknown]
  - Feeling abnormal [Unknown]
  - Sepsis [Unknown]
  - Osteomyelitis [Unknown]
  - Malaise [Unknown]
  - Localised infection [Unknown]
  - Infection [Unknown]
